FAERS Safety Report 21263094 (Version 1)
Quarter: 2022Q3

REPORT INFORMATION
  Report Type: Spontaneous
  Country: US (occurrence: None)
  Receive Date: 20220828
  Receipt Date: 20220828
  Transmission Date: 20221027
  Serious: No
  Sender: FDA-Public Use
  Company Number: 2022A282990

PATIENT
  Sex: Male
  Weight: 46.7 kg

DRUGS (3)
  1. ROSUVASTATIN CALCIUM [Suspect]
     Active Substance: ROSUVASTATIN CALCIUM
     Indication: Blood cholesterol increased
     Dosage: UNKNOWN
     Route: 048
  2. CRESTOR [Suspect]
     Active Substance: ROSUVASTATIN CALCIUM
     Indication: Blood cholesterol increased
     Route: 048
  3. CRESTOR [Suspect]
     Active Substance: ROSUVASTATIN CALCIUM
     Indication: Blood cholesterol increased
     Route: 048
     Dates: start: 20220719

REACTIONS (9)
  - Myalgia [Recovered/Resolved]
  - Hepatic enzyme increased [Recovered/Resolved]
  - Diarrhoea [Unknown]
  - Blood cholesterol increased [Unknown]
  - Blood triglycerides increased [Unknown]
  - Low density lipoprotein increased [Unknown]
  - Non-high-density lipoprotein cholesterol increased [Unknown]
  - Total cholesterol/HDL ratio increased [Unknown]
  - Insurance issue [Unknown]
